FAERS Safety Report 5309543-X (Version None)
Quarter: 2007Q2

REPORT INFORMATION
  Report Type: 
  Country: None (occurrence: None)
  Receive Date: 20070427
  Receipt Date: 20061003
  Transmission Date: 20071010
  Serious: No
  Sender: FDA-Public Use
  Company Number: US-GLAXOSMITHKLINE-A0622304A

PATIENT
  Age: 38 Year
  Sex: Male

DRUGS (1)
  1. DEXTROAMPHETAMINE SULFATE [Suspect]
     Indication: NARCOLEPSY
     Route: 048

REACTIONS (1)
  - DRUG INEFFECTIVE [None]
